FAERS Safety Report 7296717-4 (Version None)
Quarter: 2011Q1

REPORT INFORMATION
  Report Type: 
  Country: None (occurrence: None)
  Receive Date: 20110216
  Receipt Date: 20110207
  Transmission Date: 20110831
  Serious: Yes (Hospitalization)
  Sender: FDA-Public Use
  Company Number: US-ASTRAZENECA-2011SE01690

PATIENT
  Age: 51 Year
  Sex: Male

DRUGS (1)
  1. RHINOCORT [Suspect]
     Route: 045

REACTIONS (5)
  - DYSPNOEA EXERTIONAL [None]
  - THROAT IRRITATION [None]
  - BRAIN OPERATION [None]
  - DYSPNOEA [None]
  - DRUG DOSE OMISSION [None]
